FAERS Safety Report 11919706 (Version 1)
Quarter: 2016Q1

REPORT INFORMATION
  Report Type: Spontaneous
  Country: US (occurrence: None)
  Receive Date: 20160114
  Receipt Date: 20160114
  Transmission Date: 20160526
  Serious: Yes (Hospitalization)
  Sender: FDA-Public Use
  Company Number: None

PATIENT
  Age: 70 Year
  Sex: Female
  Weight: 56.25 kg

DRUGS (6)
  1. BELSOMRA [Suspect]
     Active Substance: SUVOREXANT
     Indication: INITIAL INSOMNIA
     Route: 048
     Dates: start: 20151218, end: 20151229
  2. CITRICAL [Concomitant]
     Active Substance: CALCIUM CITRATE
  3. VITAMIN D [Concomitant]
     Active Substance: CHOLECALCIFEROL
  4. LIPITOR [Concomitant]
     Active Substance: ATORVASTATIN CALCIUM
  5. PHENAZOPYRIDINE. [Concomitant]
     Active Substance: PHENAZOPYRIDINE
  6. TAMOXIFEN [Concomitant]
     Active Substance: TAMOXIFEN

REACTIONS (11)
  - Incoherent [None]
  - Malaise [None]
  - Loss of consciousness [None]
  - Dehydration [None]
  - Diarrhoea [None]
  - Fall [None]
  - Head injury [None]
  - Intentional product use issue [None]
  - Nausea [None]
  - Eye contusion [None]
  - Feeling abnormal [None]

NARRATIVE: CASE EVENT DATE: 20151229
